FAERS Safety Report 5730143-1 (Version None)
Quarter: 2008Q2

REPORT INFORMATION
  Report Type: 
  Country: None (occurrence: None)
  Receive Date: 20080502
  Receipt Date: 20080416
  Transmission Date: 20081010
  Serious: Yes (Hospitalization)
  Sender: FDA-Public Use
  Company Number: 190001L08FRA

PATIENT
  Age: 35 Year
  Sex: Female

DRUGS (2)
  1. PERGONAL [Suspect]
     Indication: INFERTILITY FEMALE
     Dosage: 75 IU
     Dates: start: 19700601, end: 19700601
  2. CHORIONIC GONADOTROPIN [Suspect]
     Indication: INFERTILITY FEMALE
     Dosage: 2000 IU, 3 IN
     Dates: start: 19700601, end: 19700601

REACTIONS (15)
  - ABDOMINAL DISTENSION [None]
  - ABDOMINAL PAIN [None]
  - AMAUROSIS [None]
  - CEREBROVASCULAR ACCIDENT [None]
  - CIRCULATORY COLLAPSE [None]
  - COMA [None]
  - DIARRHOEA [None]
  - HALLUCINATION, OLFACTORY [None]
  - MUTISM [None]
  - OVARIAN HYPERSTIMULATION SYNDROME [None]
  - QUADRIPLEGIA [None]
  - RESPIRATORY DISTRESS [None]
  - THROMBOSIS [None]
  - VERTIGO [None]
  - VOMITING [None]
